FAERS Safety Report 8065498-9 (Version None)
Quarter: 2012Q1

REPORT INFORMATION
  Report Type: 
  Country: None (occurrence: None)
  Receive Date: 20120117
  Receipt Date: 20120110
  Transmission Date: 20120608
  Serious: Yes (Other)
  Sender: FDA-Public Use
  Company Number: GER/UKI/12/0022604

PATIENT
  Age: 80 Year
  Sex: Female
  Weight: 89.7 kg

DRUGS (13)
  1. ALENDRONIC ACID (ALENDRONIC ACID) [Suspect]
     Indication: PRODUCT USED FOR UNKNOWN INDICATION
     Dosage: ORAL
     Route: 048
     Dates: start: 20110901, end: 20111116
  2. FUROSEMIDE [Concomitant]
  3. KETOPROFEN [Concomitant]
  4. ACETAMINOPHEN [Concomitant]
  5. ALLOPURINOL [Concomitant]
  6. AMOXICILLIN [Concomitant]
  7. LOSARTAN POTASSIUM [Concomitant]
  8. ALBUTEROL SULFATE [Concomitant]
  9. SIMVASTATIN [Concomitant]
  10. ISOSORBIDE MONONITRATE [Concomitant]
  11. WARFARIN SODIUM [Concomitant]
  12. BISOPROLOL FUMARATE [Concomitant]
  13. CALCICHEW D3 (LEKOVIT CA) [Concomitant]

REACTIONS (3)
  - PAIN IN JAW [None]
  - TOOTH LOSS [None]
  - OSTEONECROSIS OF JAW [None]
